FAERS Safety Report 4849835-1 (Version None)
Quarter: 2005Q4

REPORT INFORMATION
  Report Type: 
  Country: None (occurrence: None)
  Receive Date: 20051209
  Receipt Date: 20050915
  Transmission Date: 20060501
  Serious: Yes (Hospitalization, Disabling)
  Sender: FDA-Public Use
  Company Number: CA-MERCK-0509CAN00109

PATIENT
  Age: 50 Year
  Sex: Male
  Weight: 109 kg

DRUGS (4)
  1. VIOXX [Suspect]
     Indication: OSTEOARTHRITIS
     Route: 048
     Dates: start: 20020807, end: 20040930
  2. METFORMIN [Concomitant]
     Indication: DIABETES MELLITUS
     Route: 065
  3. [THERAPY UNSPECIFIED] [Concomitant]
     Indication: EAR INFECTION
     Route: 065
  4. ACETAMINOPHEN [Concomitant]
     Indication: HEADACHE
     Route: 065

REACTIONS (1)
  - MYOCARDIAL INFARCTION [None]
